FAERS Safety Report 8418942-9 (Version None)
Quarter: 2012Q2

REPORT INFORMATION
  Report Type: 
  Country: None (occurrence: None)
  Receive Date: 20120607
  Receipt Date: 20120530
  Transmission Date: 20120825
  Serious: Yes (Hospitalization)
  Sender: FDA-Public Use
  Company Number: PHHY2012FR046929

PATIENT
  Sex: Female

DRUGS (6)
  1. LANSOPRAZOLE [Suspect]
     Dosage: 15 MG, DAILY
     Route: 048
  2. AMLODIPINE BESYLATE [Suspect]
     Dosage: 5 MG, DAILY
     Route: 048
  3. ASPIRIN [Suspect]
     Dosage: 160 MG, DAILY
     Route: 048
  4. VALSARTAN  AND HYDROCHLOROTHIAZIDE [Suspect]
     Dosage: 1 DF, (160MG/25MG)
     Route: 048
  5. SERMION [Suspect]
     Dosage: 10 MG,
     Route: 048
     Dates: end: 20120511
  6. THIAMINE HYDROCHLORIDE [Concomitant]
     Dosage: UNK UKN, UNK

REACTIONS (6)
  - IDIOPATHIC PULMONARY FIBROSIS [None]
  - INTERSTITIAL LUNG DISEASE [None]
  - GENERAL PHYSICAL HEALTH DETERIORATION [None]
  - FALL [None]
  - RHEUMATOID FACTOR POSITIVE [None]
  - RALES [None]
